FAERS Safety Report 11938011 (Version 1)
Quarter: 2016Q1

REPORT INFORMATION
  Report Type: Spontaneous
  Country: CA (occurrence: CA)
  Receive Date: 20160122
  Receipt Date: 20160122
  Transmission Date: 20160526
  Serious: Yes (Other)
  Sender: FDA-Public Use
  Company Number: CA-TEVA-627346ACC

PATIENT
  Age: 53 Year
  Sex: Female
  Weight: 77 kg

DRUGS (6)
  1. PAROXETINE [Suspect]
     Active Substance: PAROXETINE\PAROXETINE HYDROCHLORIDE
     Indication: BIPOLAR DISORDER
     Dosage: 30 MILLIGRAM DAILY;
     Route: 048
  2. NORTRIPTYLINE [Concomitant]
     Active Substance: NORTRIPTYLINE
  3. LIPITOR [Concomitant]
     Active Substance: ATORVASTATIN CALCIUM
  4. CARBAMAZEPINE. [Suspect]
     Active Substance: CARBAMAZEPINE
     Indication: DEPRESSION
     Dosage: 600 MILLIGRAM DAILY;
     Route: 048
  5. SEROQUEL XR [Concomitant]
     Active Substance: QUETIAPINE FUMARATE
  6. CLONAZEPAM. [Concomitant]
     Active Substance: CLONAZEPAM

REACTIONS (3)
  - Product substitution issue [Unknown]
  - Mania [Unknown]
  - Drug ineffective [Unknown]
